FAERS Safety Report 24230597 (Version 1)
Quarter: 2024Q3

REPORT INFORMATION
  Report Type: Spontaneous
  Country: US (occurrence: US)
  Receive Date: 20240821
  Receipt Date: 20240821
  Transmission Date: 20241016
  Serious: Yes (Hospitalization)
  Sender: ABBVIE
  Company Number: US-ABBVIE-5884493

PATIENT
  Sex: Male

DRUGS (2)
  1. HUMIRA [Suspect]
     Active Substance: ADALIMUMAB
     Indication: Crohn^s disease
     Route: 058
     Dates: start: 2015, end: 202211
  2. FLONASE [Concomitant]
     Active Substance: FLUTICASONE PROPIONATE
     Indication: Hypersensitivity

REACTIONS (9)
  - Hepatic infection [Unknown]
  - Abdominal pain [Unknown]
  - Liver abscess [Unknown]
  - Drug ineffective [Not Recovered/Not Resolved]
  - Illness [Unknown]
  - White blood cell count increased [Unknown]
  - Skin exfoliation [Recovered/Resolved]
  - Blood iron decreased [Unknown]
  - Abdominal infection [Unknown]

NARRATIVE: CASE EVENT DATE: 20220101
